FAERS Safety Report 9146849 (Version 1)
Quarter: 2013Q1

REPORT INFORMATION
  Report Type: Spontaneous
  Country: US (occurrence: None)
  Receive Date: 20130228
  Receipt Date: 20130228
  Transmission Date: 20140127
  Serious: Yes (Other)
  Sender: FDA-Public Use
  Company Number: None

PATIENT
  Age: 43 Year
  Sex: Male

DRUGS (1)
  1. RECOTHROM [Suspect]
     Indication: VASCULAR PSEUDOANEURYSM
     Dosage: 5000 UNITS ONCE TOP
     Route: 061
     Dates: start: 20130222, end: 20130227

REACTIONS (5)
  - Feeling hot [None]
  - Flushing [None]
  - Headache [None]
  - Blood pressure decreased [None]
  - Presyncope [None]
